FAERS Safety Report 5388863-7 (Version None)
Quarter: 2007Q3

REPORT INFORMATION
  Report Type: 
  Country: None (occurrence: None)
  Receive Date: 20070706
  Receipt Date: 20070626
  Transmission Date: 20080115
  Serious: Yes (Hospitalization, Other)
  Sender: FDA-Public Use
  Company Number: THYM-11465

PATIENT
  Age: 47 Year
  Sex: Male
  Weight: 117.8 kg

DRUGS (17)
  1. THYMOGLOBULIN [Suspect]
     Indication: LIVER TRANSPLANT
     Dosage: 189 MG QD IV
     Route: 042
     Dates: start: 20061027, end: 20061027
  2. THYMOGLOBULIN [Suspect]
     Indication: PREOPERATIVE CARE
     Dosage: 189 MG QD IV
     Route: 042
     Dates: start: 20061027, end: 20061027
  3. SOLU-MEDROL [Concomitant]
  4. SOLU-CORTEF [Concomitant]
  5. PROGRAF [Concomitant]
  6. PREDNISONE [Concomitant]
  7. SULFATRIM [Concomitant]
  8. VALCYTE [Concomitant]
  9. PROTONIX [Concomitant]
  10. CORTEF [Concomitant]
  11. NIFEDIPINE [Concomitant]
  12. MULTI-VITAMIN [Concomitant]
  13. SURFAK [Concomitant]
  14. HUMALOG [Concomitant]
  15. LANTUS [Concomitant]
  16. FLAGYL [Concomitant]
  17. LEVOTHYROXINE SODIUM [Concomitant]

REACTIONS (3)
  - B-CELL LYMPHOMA [None]
  - LYMPHOPROLIFERATIVE DISORDER [None]
  - RENAL FAILURE ACUTE [None]
